FAERS Safety Report 13255499 (Version 2)
Quarter: 2017Q1

REPORT INFORMATION
  Report Type: Spontaneous
  Country: US (occurrence: US)
  Receive Date: 20170221
  Receipt Date: 20170317
  Transmission Date: 20170428
  Serious: Yes (Hospitalization, Other)
  Sender: FDA-Public Use
  Company Number: US-SHIRE-US201702667

PATIENT
  Age: 86 Year
  Sex: Female
  Weight: 102.4 kg

DRUGS (1)
  1. XIIDRA [Suspect]
     Active Substance: LIFITEGRAST
     Indication: DRY EYE
     Dosage: 1 GTT, (BOTH EYES) 2X/DAY:BID
     Route: 047
     Dates: start: 20161220

REACTIONS (3)
  - Pneumonia [Recovering/Resolving]
  - Bronchitis [Recovering/Resolving]
  - Instillation site pain [Unknown]

NARRATIVE: CASE EVENT DATE: 201701
